FAERS Safety Report 4836686-7 (Version None)
Quarter: 2005Q4

REPORT INFORMATION
  Report Type: 
  Country: None (occurrence: None)
  Receive Date: 20051121
  Receipt Date: 20051104
  Transmission Date: 20060501
  Serious: Yes (Hospitalization, Other)
  Sender: FDA-Public Use
  Company Number: 2005BL006706

PATIENT
  Age: 23 Year
  Sex: Female

DRUGS (1)
  1. FLUOCINOLONE ACETONIDE INTRAVITREAL IMPLANT (MASKED) (FLUOCINOLONE ACE [Suspect]
     Indication: CHOROIDITIS
     Dosage: LEFT EYE
     Dates: start: 20021025, end: 20051029

REACTIONS (3)
  - IMPLANT SITE REACTION [None]
  - PROCEDURAL COMPLICATION [None]
  - RETINAL DETACHMENT [None]
